FAERS Safety Report 17305573 (Version 1)
Quarter: 2020Q1

REPORT INFORMATION
  Report Type: Spontaneous
  Country: FR (occurrence: FR)
  Receive Date: 20200123
  Receipt Date: 20200123
  Transmission Date: 20200409
  Serious: Yes (Hospitalization, Other)
  Sender: FDA-Public Use
  Company Number: FR-JNJFOC-20200119452

PATIENT
  Age: 91 Year
  Sex: Male
  Weight: 57 kg

DRUGS (1)
  1. RIVAROXABAN [Suspect]
     Active Substance: RIVAROXABAN
     Indication: ATRIAL FIBRILLATION
     Route: 048
     Dates: end: 20191206

REACTIONS (2)
  - Ischaemic stroke [Recovering/Resolving]
  - Product supply issue [Not Recovered/Not Resolved]

NARRATIVE: CASE EVENT DATE: 20191114
